FAERS Safety Report 8472568 (Version 3)
Quarter: 2013Q1

REPORT INFORMATION
  Report Type: Report from Study
  Country: FR (occurrence: FR)
  Receive Date: 20120322
  Receipt Date: 20130306
  Transmission Date: 20140127
  Serious: Yes (Death, Hospitalization, Other)
  Sender: FDA-Public Use
  Company Number: FR-ELI_LILLY_AND_COMPANY-FR201202006282

PATIENT
  Age: 62 Year
  Sex: Male
  Weight: 74.5 kg

DRUGS (3)
  1. PEMETREXED [Suspect]
     Indication: NON-SMALL CELL LUNG CANCER STAGE III
     Dosage: 500 MG/M2, D1, D22 AND D43
     Route: 042
     Dates: start: 20110829, end: 20111012
  2. RADIATION [Suspect]
     Indication: NON-SMALL CELL LUNG CANCER STAGE III
     Dosage: 60 GY, (30 X 2GY)
     Dates: start: 20110829, end: 20111007
  3. PEMETREXED [Suspect]
     Indication: NON-SMALL CELL LUNG CANCER STAGE III
     Dosage: 500 MG/M2, DAY 1, 22, 43 AND 64
     Route: 042
     Dates: start: 20111116, end: 20120118

REACTIONS (1)
  - Pneumonitis [Fatal]
